FAERS Safety Report 6130340-X (Version None)
Quarter: 2009Q1

REPORT INFORMATION
  Report Type: 
  Country: None (occurrence: None)
  Receive Date: 20090324
  Receipt Date: 20090320
  Transmission Date: 20090719
  Serious: Yes (Hospitalization)
  Sender: FDA-Public Use
  Company Number: CA-ROXANE LABORATORIES, INC.-2009-RO-00268RO

PATIENT
  Age: 11 Month
  Sex: Female

DRUGS (3)
  1. METHADONE HCL [Suspect]
     Route: 048
  2. NALOXONE [Concomitant]
     Indication: DRUG TOXICITY
     Route: 042
  3. ANTIBIOTICS [Concomitant]
     Indication: SEPSIS

REACTIONS (3)
  - ACCIDENTAL EXPOSURE [None]
  - DRUG TOXICITY [None]
  - RESPIRATORY ACIDOSIS [None]
